FAERS Safety Report 22124277 (Version 1)
Quarter: 2023Q1

REPORT INFORMATION
  Report Type: Spontaneous
  Country: DE (occurrence: DE)
  Receive Date: 20230322
  Receipt Date: 20230322
  Transmission Date: 20230417
  Serious: Yes (Other)
  Sender: FDA-Public Use
  Company Number: DE-BAXTER-2023BAX012632

PATIENT
  Age: 60 Year
  Sex: Female

DRUGS (12)
  1. DOXORUBICIN [Suspect]
     Active Substance: DOXORUBICIN
     Indication: Follicular lymphoma
     Dosage: UNK
     Route: 065
     Dates: start: 20130701, end: 20140201
  2. BENDAMUSTINE HYDROCHLORIDE [Suspect]
     Active Substance: BENDAMUSTINE HYDROCHLORIDE
     Indication: Follicular lymphoma
     Dosage: UNK, CYCLIC, POWDER (EXCEPT DUSTING POWDER)
     Route: 042
     Dates: start: 20150901, end: 20160201
  3. DEXAMETHASONE [Suspect]
     Active Substance: DEXAMETHASONE
     Indication: Follicular lymphoma
     Dosage: UNK, UNKNOWN FREQ.
     Route: 065
     Dates: start: 20181026, end: 20181213
  4. VINCRISTINE [Suspect]
     Active Substance: VINCRISTINE
     Indication: Follicular lymphoma
     Dosage: UNK
     Route: 065
     Dates: start: 20130701, end: 20140201
  5. CISPLATIN\CYTARABINE\DEXAMETHASONE [Suspect]
     Active Substance: CISPLATIN\CYTARABINE\DEXAMETHASONE
     Indication: Follicular lymphoma
     Dosage: UNK, UNKNOWN FREQ
     Route: 065
     Dates: start: 20181026, end: 20181213
  6. MABTHERA [Suspect]
     Active Substance: RITUXIMAB
     Indication: Follicular lymphoma
     Dosage: UNK,(FIRST LINE WITH CHOP),UNKNOWN FREQ
     Route: 065
     Dates: start: 20130701, end: 20140201
  7. MABTHERA [Suspect]
     Active Substance: RITUXIMAB
     Indication: Diffuse large B-cell lymphoma
     Dosage: FIRST LINE WITH CHOP
     Route: 065
     Dates: start: 20181026, end: 20181213
  8. POLATUZUMAB VEDOTIN [Suspect]
     Active Substance: POLATUZUMAB VEDOTIN
     Indication: Follicular lymphoma
     Dosage: UNK, UNKNOWN FREQ
     Route: 065
     Dates: start: 20200501, end: 20200601
  9. CYCLOPHOSPHAMIDE [Suspect]
     Active Substance: CYCLOPHOSPHAMIDE
     Indication: Follicular lymphoma
     Dosage: UNK, UNKNOWN FREQ
     Route: 065
     Dates: start: 20130701, end: 20140201
  10. EPIRUBICIN [Suspect]
     Active Substance: EPIRUBICIN
     Indication: Follicular lymphoma
     Dosage: UNK, HYDROCHLORIDE
     Route: 065
     Dates: start: 20130701, end: 20140201
  11. BEAM [Suspect]
     Active Substance: SODIUM FLUORIDE
     Indication: Follicular lymphoma
     Dosage: UNK, UNKNOWN FREQ.
     Route: 065
     Dates: start: 20190201, end: 20190213
  12. PREDNISONE [Suspect]
     Active Substance: PREDNISONE
     Indication: Follicular lymphoma
     Dosage: UNK, UNKNOWN FREQ.
     Route: 065
     Dates: start: 20130701, end: 20140201

REACTIONS (3)
  - Ototoxicity [Unknown]
  - Malignant neoplasm progression [Unknown]
  - Off label use [Unknown]
